FAERS Safety Report 23782326 (Version 1)
Quarter: 2024Q2

REPORT INFORMATION
  Report Type: Spontaneous
  Country: US (occurrence: None)
  Receive Date: 20240424
  Receipt Date: 20240424
  Transmission Date: 20240717
  Serious: No
  Sender: FDA-Public Use
  Company Number: None

PATIENT
  Age: 64 Year
  Sex: Male

DRUGS (1)
  1. AMPHOTERICIN B [Suspect]
     Active Substance: AMPHOTERICIN B
     Indication: Infection
     Dosage: FREQUENCY : AT BEDTIME;?
     Route: 042
     Dates: start: 20240404, end: 20240411

REACTIONS (4)
  - Acute kidney injury [None]
  - Renal tubular necrosis [None]
  - Refusal of treatment by patient [None]
  - Autoimmune disorder [None]

NARRATIVE: CASE EVENT DATE: 20240404
